FAERS Safety Report 7762053-2 (Version None)
Quarter: 2011Q3

REPORT INFORMATION
  Report Type: 
  Country: None (occurrence: None)
  Receive Date: 20110920
  Receipt Date: 20110907
  Transmission Date: 20111222
  Serious: Yes (Death)
  Sender: FDA-Public Use
  Company Number: US-KINGPHARMUSA00001-K201101077

PATIENT
  Age: 20 Year
  Sex: Male

DRUGS (2)
  1. EPIPEN [Suspect]
     Indication: ANAPHYLACTIC REACTION
  2. EPIPEN [Suspect]
     Indication: MILK ALLERGY
     Dosage: UNK
     Dates: start: 20110818, end: 20110818

REACTIONS (4)
  - DRUG INEFFECTIVE [None]
  - DRUG ADMINISTRATION ERROR [None]
  - TREATMENT FAILURE [None]
  - NEEDLE ISSUE [None]
